FAERS Safety Report 16943333 (Version 1)
Quarter: 2019Q4

REPORT INFORMATION
  Report Type: Report from Study
  Country: None (occurrence: GB)
  Receive Date: 20191022
  Receipt Date: 20191022
  Transmission Date: 20200122
  Serious: Yes (Hospitalization)
  Sender: FDA-Public Use
  Company Number: GB-ABBVIE-19K-167-2971003-00

PATIENT
  Sex: Male

DRUGS (1)
  1. DUODOPA [Suspect]
     Active Substance: CARBIDOPA\LEVODOPA
     Indication: PARKINSON^S DISEASE
     Dosage: 100ML CASSETTE DAILY ??5MG/1ML??20MG/1ML
     Route: 050

REACTIONS (4)
  - Syncope [Unknown]
  - Pyrexia [Unknown]
  - Pulmonary oedema [Unknown]
  - Infection [Unknown]

NARRATIVE: CASE EVENT DATE: 2019
